FAERS Safety Report 17309379 (Version 2)
Quarter: 2020Q1

REPORT INFORMATION
  Report Type: Report from Study
  Country: None (occurrence: US)
  Receive Date: 20200123
  Receipt Date: 20200304
  Transmission Date: 20200409
  Serious: Yes (Other)
  Sender: FDA-Public Use
  Company Number: US-ABBVIE-20K-163-3245419-00

PATIENT
  Sex: Female
  Weight: 60.38 kg

DRUGS (1)
  1. HUMIRA [Suspect]
     Active Substance: ADALIMUMAB
     Indication: CROHN^S DISEASE
     Route: 058

REACTIONS (5)
  - Pruritus [Unknown]
  - Systemic lupus erythematosus [Not Recovered/Not Resolved]
  - Skin exfoliation [Unknown]
  - Rash macular [Unknown]
  - Rash [Not Recovered/Not Resolved]
